FAERS Safety Report 9720230 (Version 1)
Quarter: 2013Q4

REPORT INFORMATION
  Report Type: Spontaneous
  Country: MX (occurrence: MX)
  Receive Date: 20131129
  Receipt Date: 20131129
  Transmission Date: 20140711
  Serious: Yes (Other)
  Sender: FDA-Public Use
  Company Number: MX-ROCHE-1310402

PATIENT
  Age: 47 Year
  Sex: 0

DRUGS (8)
  1. HERCEPTIN [Suspect]
     Indication: BREAST CANCER
     Dosage: LOADING DOSE
     Route: 065
     Dates: start: 20090714, end: 20090714
  2. HERCEPTIN [Suspect]
     Dosage: MAINTAINENCE DOSE
     Route: 065
     Dates: end: 20100128
  3. HERCEPTIN [Suspect]
     Dosage: 2ND LINE THERAPY
     Route: 065
     Dates: start: 20101122
  4. CARBOPLATIN [Suspect]
     Indication: BREAST CANCER
     Route: 065
     Dates: start: 20090714, end: 20100128
  5. CARBOPLATIN [Suspect]
     Route: 065
     Dates: start: 20101122
  6. DOCETAXEL [Suspect]
     Indication: BREAST CANCER
     Route: 065
     Dates: start: 20090714, end: 20100128
  7. DOCETAXEL [Suspect]
     Dosage: 2ND LINE THERAPY
     Route: 065
     Dates: start: 20101122
  8. AVASTIN [Suspect]
     Indication: PRODUCT USED FOR UNKNOWN INDICATION
     Dosage: RESTARTED
     Route: 065
     Dates: start: 20110919

REACTIONS (2)
  - Toxicity to various agents [Unknown]
  - Disease progression [Unknown]
